FAERS Safety Report 11216594 (Version 1)
Quarter: 2015Q2

REPORT INFORMATION
  Report Type: Spontaneous
  Country: DE (occurrence: DE)
  Receive Date: 20150624
  Receipt Date: 20150624
  Transmission Date: 20150821
  Serious: Yes (Other)
  Sender: FDA-Public Use
  Company Number: DE-TEVA-572653GER

PATIENT
  Age: 30 Year
  Sex: Female

DRUGS (1)
  1. PREDNISOLONE. [Suspect]
     Active Substance: PREDNISOLONE
     Indication: SYSTEMIC LUPUS ERYTHEMATOSUS
     Dosage: DOSAGE IN THE BEGINNING 16 MG/D, IN THE LAST WEEKS OF PREGNANCY 8 MG/D
     Route: 048
     Dates: start: 20140530, end: 20150221

REACTIONS (2)
  - Live birth [Unknown]
  - Gestational diabetes [Unknown]
